FAERS Safety Report 8500885-3 (Version None)
Quarter: 2012Q3

REPORT INFORMATION
  Report Type: 
  Country: None (occurrence: None)
  Receive Date: 20120710
  Receipt Date: 20120704
  Transmission Date: 20120928
  Serious: Yes (Death, Hospitalization)
  Sender: FDA-Public Use
  Company Number: PHHO2010IT08546

PATIENT
  Sex: Male
  Weight: 69 kg

DRUGS (5)
  1. ROXITHROMYCIN [Concomitant]
  2. BETAMETHASONE [Concomitant]
     Dosage: 1 MG, QD
     Dates: start: 20081101, end: 20090722
  3. INC424 [Suspect]
     Indication: MYELOFIBROSIS
     Dosage: 20 MG, BID
     Route: 048
     Dates: start: 20091108, end: 20100301
  4. FUROSEMIDE [Concomitant]
  5. ALFUZOSIN HCL [Concomitant]

REACTIONS (6)
  - PYREXIA [None]
  - PANCYTOPENIA [None]
  - LUNG INFILTRATION [None]
  - PAIN [None]
  - TUBERCULOSIS [None]
  - DISEASE PROGRESSION [None]
